FAERS Safety Report 17810056 (Version 3)
Quarter: 2020Q2

REPORT INFORMATION
  Report Type: Spontaneous
  Country: US (occurrence: US)
  Receive Date: 20200520
  Receipt Date: 20200616
  Transmission Date: 20200714
  Serious: Yes (Death, Hospitalization, Other)
  Sender: FDA-Public Use
  Company Number: US-GILEAD-2020-0467380

PATIENT
  Age: 69 Year
  Sex: Female
  Weight: 79.4 kg

DRUGS (24)
  1. FENTANYL. [Concomitant]
     Active Substance: FENTANYL
     Dosage: UNK
     Dates: start: 20200510
  2. GABAPENTIN. [Concomitant]
     Active Substance: GABAPENTIN
     Dosage: UNK
     Dates: start: 20200509
  3. SENNA ACUTIFOLIA [Concomitant]
     Dosage: UNK
     Dates: start: 20200507
  4. FUROSEMIDE [FUROSEMIDE SODIUM] [Concomitant]
     Active Substance: FUROSEMIDE SODIUM
     Dosage: 40 MG, ONCE
     Route: 042
     Dates: start: 20200510, end: 20200510
  5. METOLAZONE. [Concomitant]
     Active Substance: METOLAZONE
     Dosage: 10 MG
     Dates: start: 20200509, end: 20200509
  6. SUCCINYLCHOLINE BROMIDE [Concomitant]
     Active Substance: SUXAMETHONIUM BROMIDE
     Dosage: UNK
     Dates: start: 20200510, end: 20200510
  7. BISACODYL SANDOZ [Concomitant]
     Dosage: UNK
     Dates: start: 20200508
  8. PROPOFOL. [Concomitant]
     Active Substance: PROPOFOL
     Dosage: UNK
     Dates: start: 20200510
  9. VASOPRESSIN. [Concomitant]
     Active Substance: VASOPRESSIN
  10. ZOSYN [Suspect]
     Active Substance: PIPERACILLIN SODIUM\TAZOBACTAM SODIUM
  11. EPOPROSTENOL. [Concomitant]
     Active Substance: EPOPROSTENOL
     Dosage: UNK
     Dates: start: 20200510
  12. ASPIRIN (E.C.) [Concomitant]
     Active Substance: ASPIRIN
     Dosage: UNK
     Dates: start: 20200506
  13. HYDROXYCHLOROQUINE [Concomitant]
     Active Substance: HYDROXYCHLOROQUINE
     Dosage: UNK
     Dates: start: 20200507
  14. POTASSIUM CHLORIDE. [Concomitant]
     Active Substance: POTASSIUM CHLORIDE
     Dosage: UNK
     Dates: start: 20200510
  15. ENOXAPARIN [Concomitant]
     Active Substance: ENOXAPARIN
     Dosage: UNK
     Dates: start: 20200505, end: 20200511
  16. REMDESIVIR. [Suspect]
     Active Substance: REMDESIVIR
     Indication: COVID-19
     Dosage: 100 MG, 5 MG/ML QD
     Route: 042
     Dates: start: 20200507, end: 20200511
  17. FAMOTIDINE. [Concomitant]
     Active Substance: FAMOTIDINE
     Dosage: UNK
     Dates: start: 20200510
  18. HEPARIN [Concomitant]
     Active Substance: HEPARIN SODIUM
     Dosage: UNK
     Dates: start: 20200512
  19. VANCOMYCIN [Suspect]
     Active Substance: VANCOMYCIN
  20. ETOMIDATE. [Concomitant]
     Active Substance: ETOMIDATE
     Dosage: UNK
     Dates: start: 20200510, end: 20200510
  21. NALOXONE [Concomitant]
     Active Substance: NALOXONE
     Dosage: UNK
     Dates: start: 20200510
  22. PIPERACILLIN/TAZOBACTAM [Concomitant]
     Active Substance: PIPERACILLIN SODIUM\TAZOBACTAM SODIUM
     Dosage: UNK
     Dates: start: 20200510
  23. NOREPINEPHRINE. [Concomitant]
     Active Substance: NOREPINEPHRINE
     Dosage: 90 UNK
     Dates: start: 20200510
  24. INSULIN LISPRO [Concomitant]
     Active Substance: INSULIN LISPRO

REACTIONS (4)
  - Blood creatinine increased [Not Recovered/Not Resolved]
  - Death [Fatal]
  - Acute kidney injury [Not Recovered/Not Resolved]
  - Oliguria [Unknown]

NARRATIVE: CASE EVENT DATE: 20200511
